FAERS Safety Report 16188000 (Version 1)
Quarter: 2019Q2

REPORT INFORMATION
  Report Type: Spontaneous
  Country: TW (occurrence: TW)
  Receive Date: 20190412
  Receipt Date: 20190412
  Transmission Date: 20190711
  Serious: Yes (Other)
  Sender: FDA-Public Use
  Company Number: TW-ALKEM LABORATORIES LIMITED-TW-ALKEM-2018-10492

PATIENT
  Age: 56 Year
  Sex: Female

DRUGS (10)
  1. QUETIAPINE FUMARATE. [Suspect]
     Active Substance: QUETIAPINE FUMARATE
     Indication: PSYCHOMOTOR RETARDATION
  2. LAMOTRIGINE. [Suspect]
     Active Substance: LAMOTRIGINE
     Indication: BIPOLAR I DISORDER
     Dosage: 150 MG, QD
     Route: 065
  3. VALPROIC ACID. [Suspect]
     Active Substance: VALPROIC ACID
     Indication: PSYCHOMOTOR RETARDATION
  4. QUETIAPINE FUMARATE. [Suspect]
     Active Substance: QUETIAPINE FUMARATE
     Indication: DEPRESSIVE SYMPTOM
     Dosage: 400 MG, QD
     Route: 065
  5. VALPROIC ACID. [Suspect]
     Active Substance: VALPROIC ACID
     Indication: DEPRESSIVE SYMPTOM
     Dosage: 500 MG, QD
     Route: 065
  6. ESTAZOLAM. [Concomitant]
     Active Substance: ESTAZOLAM
     Indication: DEPRESSIVE SYMPTOM
     Dosage: 2 MG, QD
     Route: 065
  7. VALPROIC ACID. [Suspect]
     Active Substance: VALPROIC ACID
     Indication: SUICIDAL IDEATION
  8. ESTAZOLAM. [Concomitant]
     Active Substance: ESTAZOLAM
     Indication: SUICIDAL IDEATION
  9. QUETIAPINE FUMARATE. [Suspect]
     Active Substance: QUETIAPINE FUMARATE
     Indication: SUICIDAL IDEATION
  10. ESTAZOLAM. [Concomitant]
     Active Substance: ESTAZOLAM
     Indication: PSYCHOMOTOR RETARDATION

REACTIONS (4)
  - Drug interaction [Unknown]
  - Thrombocytopenia [Recovered/Resolved]
  - Neutropenia [Recovered/Resolved]
  - Stevens-Johnson syndrome [Recovered/Resolved]
